FAERS Safety Report 20092129 (Version 5)
Quarter: 2022Q3

REPORT INFORMATION
  Report Type: Spontaneous
  Country: BR (occurrence: BR)
  Receive Date: 20211119
  Receipt Date: 20220623
  Transmission Date: 20221027
  Serious: Yes (Hospitalization, Other)
  Sender: FDA-Public Use
  Company Number: BR-NOVARTISPH-NVSC2021BR264775

PATIENT
  Age: 43 Year
  Sex: Female

DRUGS (8)
  1. KISQALI [Suspect]
     Active Substance: RIBOCICLIB
     Indication: Breast cancer
     Dosage: 2 DF, QD (BY THE DAY DURING 21 DAYS AND PAUSE FOR 7 DAYS)
     Route: 065
  2. KISQALI [Suspect]
     Active Substance: RIBOCICLIB
     Dosage: UNK
     Route: 065
     Dates: start: 202004
  3. KISQALI [Suspect]
     Active Substance: RIBOCICLIB
     Dosage: UNK
     Route: 065
     Dates: start: 20211108
  4. KISQALI [Suspect]
     Active Substance: RIBOCICLIB
     Dosage: 2 DOSAGE FORM
     Route: 065
     Dates: start: 20220415
  5. KISQALI [Suspect]
     Active Substance: RIBOCICLIB
     Dosage: UNK
     Route: 065
     Dates: end: 20220531
  6. LETROZOLE [Suspect]
     Active Substance: LETROZOLE
     Indication: Product used for unknown indication
     Dosage: UNK
     Route: 065
     Dates: start: 202003
  7. ZOLADEX [Concomitant]
     Active Substance: GOSERELIN ACETATE
     Indication: Product used for unknown indication
     Dosage: UNK
     Route: 065
  8. XGEVA [Concomitant]
     Active Substance: DENOSUMAB
     Indication: Product used for unknown indication
     Dosage: UNK
     Route: 065

REACTIONS (7)
  - Cellulitis [Unknown]
  - Metastases to bone [Unknown]
  - Illness [Recovering/Resolving]
  - Malaise [Recovering/Resolving]
  - Movement disorder [Unknown]
  - Feeling abnormal [Unknown]
  - Nausea [Unknown]

NARRATIVE: CASE EVENT DATE: 20200401
